FAERS Safety Report 10437491 (Version 1)
Quarter: 2014Q3

REPORT INFORMATION
  Report Type: Spontaneous
  Country: US (occurrence: US)
  Receive Date: 20140908
  Receipt Date: 20140908
  Transmission Date: 20150326
  Serious: Yes (Other)
  Sender: FDA-Public Use
  Company Number: US-BRISTOL-MYERS SQUIBB COMPANY-19694751

PATIENT
  Age: 23 Year
  Sex: Female
  Weight: 77.1 kg

DRUGS (4)
  1. TOPAMAX [Concomitant]
     Active Substance: TOPIRAMATE
  2. CYMBALTA [Concomitant]
     Active Substance: DULOXETINE HYDROCHLORIDE
  3. ABILIFY [Suspect]
     Active Substance: ARIPIPRAZOLE
     Indication: AFFECTIVE DISORDER
     Dosage: DOSE INCREASED 5MG/D?ON 13OCT13 1MG/D, ON 27OCT13 DOSE INCREASED 2MG/D
  4. ABILIFY [Suspect]
     Active Substance: ARIPIPRAZOLE
     Indication: TOURETTE^S DISORDER
     Dosage: DOSE INCREASED 5MG/D?ON 13OCT13 1MG/D, ON 27OCT13 DOSE INCREASED 2MG/D

REACTIONS (3)
  - Muscle twitching [Recovered/Resolved]
  - Tongue disorder [Recovered/Resolved]
  - Off label use [Unknown]

NARRATIVE: CASE EVENT DATE: 201305
